FAERS Safety Report 12624727 (Version 2)
Quarter: 2016Q3

REPORT INFORMATION
  Report Type: Spontaneous
  Country: US (occurrence: US)
  Receive Date: 20160805
  Receipt Date: 20160830
  Transmission Date: 20161109
  Serious: No
  Sender: FDA-Public Use
  Company Number: US-PFIZER INC-2016346489

PATIENT
  Age: 70 Year
  Sex: Female

DRUGS (1)
  1. XELJANZ XR [Suspect]
     Active Substance: TOFACITINIB CITRATE
     Dosage: 11 MG, UNK

REACTIONS (7)
  - Fall [Recovering/Resolving]
  - Joint injury [Recovering/Resolving]
  - Blood alkaline phosphatase increased [Unknown]
  - Movement disorder [Recovering/Resolving]
  - Arthralgia [Unknown]
  - Blood albumin decreased [Unknown]
  - Joint stiffness [Unknown]
